FAERS Safety Report 19778481 (Version 2)
Quarter: 2021Q4

REPORT INFORMATION
  Report Type: Spontaneous
  Country: JP (occurrence: JP)
  Receive Date: 20210902
  Receipt Date: 20211013
  Transmission Date: 20220303
  Serious: Yes (Death)
  Sender: FDA-Public Use
  Company Number: JP-ELI_LILLY_AND_COMPANY-JP202109000284

PATIENT
  Age: 59 Year
  Sex: Male
  Weight: 34.1 kg

DRUGS (3)
  1. NECITUMUMAB [Suspect]
     Active Substance: NECITUMUMAB
     Indication: Non-small cell lung cancer
     Dosage: 800 MG, UNKNOWN
     Route: 041
     Dates: start: 20210608
  2. GEMCITABINE HYDROCHLORIDE [Suspect]
     Active Substance: GEMCITABINE HYDROCHLORIDE
     Indication: Squamous cell carcinoma of lung
     Dosage: UNK
     Route: 042
     Dates: start: 20210608
  3. CISPLATIN [Concomitant]
     Active Substance: CISPLATIN
     Indication: Squamous cell carcinoma of lung
     Dosage: UNK
     Route: 042
     Dates: start: 20210608

REACTIONS (1)
  - Death [Fatal]
